FAERS Safety Report 24185905 (Version 2)
Quarter: 2025Q1

REPORT INFORMATION
  Report Type: Spontaneous
  Country: FR (occurrence: FR)
  Receive Date: 20240807
  Receipt Date: 20250128
  Transmission Date: 20250409
  Serious: Yes (Other)
  Sender: ORGANON
  Company Number: None

PATIENT
  Age: 51 Year
  Sex: Female
  Weight: 84 kg

DRUGS (3)
  1. EBASTINE [Suspect]
     Active Substance: EBASTINE
     Indication: Urticaria chronic
     Dosage: 20 MILLIGRAM, ONCE DAILY (QD) (FILM COATED TABLET)
     Route: 048
     Dates: start: 20240105
  2. XOLAIR [Suspect]
     Active Substance: OMALIZUMAB
     Indication: Urticaria chronic
     Dosage: 300 MILLIGRAM, EVERY 4 WEEKS (POWDER AND SOLVENT FOR SOLUTION FOR INJECTION)
     Route: 058
     Dates: start: 20231229, end: 20240222
  3. XOLAIR [Suspect]
     Active Substance: OMALIZUMAB
     Dosage: 300 MILLIGRAM, EVERY 2 WEEKS (POWDER AND SOLVENT FOR SOLUTION FOR INJECTION)
     Route: 058
     Dates: start: 20240223

REACTIONS (1)
  - Weight increased [Unknown]

NARRATIVE: CASE EVENT DATE: 20240702
